FAERS Safety Report 19166408 (Version 1)
Quarter: 2021Q2

REPORT INFORMATION
  Report Type: Spontaneous
  Country: US (occurrence: US)
  Receive Date: 20210420
  Receipt Date: 20210420
  Transmission Date: 20210717
  Serious: Yes (Disabling)
  Sender: FDA-Public Use
  Company Number: None

PATIENT
  Age: 57 Year
  Sex: Female
  Weight: 91.8 kg

DRUGS (8)
  1. MULTIVITAMIN [Concomitant]
     Active Substance: VITAMINS
  2. DULOXITINE [Suspect]
     Active Substance: DULOXETINE
     Indication: DEPRESSION
     Route: 048
     Dates: start: 20210202, end: 20210315
  3. FISH OIL [Concomitant]
     Active Substance: FISH OIL
  4. ASA 81MG DAILY [Concomitant]
  5. METOPROLOL 100MG DAILY [Concomitant]
  6. VITAMIN D 5 [Concomitant]
  7. PROBIOTIC [Concomitant]
     Active Substance: PROBIOTICS NOS
  8. LISINOPRIL 5MG DAILY [Concomitant]

REACTIONS (2)
  - Vision blurred [None]
  - Macular oedema [None]
